FAERS Safety Report 5804028-6 (Version None)
Quarter: 2008Q3

REPORT INFORMATION
  Report Type: 
  Country: None (occurrence: None)
  Receive Date: 20080707
  Receipt Date: 20080624
  Transmission Date: 20090109
  Serious: Yes (Death)
  Sender: FDA-Public Use
  Company Number: GXKR2008GB05911

PATIENT
  Age: 20 Year
  Sex: Male

DRUGS (4)
  1. DIAZEPAM [Suspect]
     Indication: ANXIETY
  2. TRAMADOL HCL [Suspect]
     Indication: PAIN
  3. DURAGESIC-100 [Suspect]
     Dosage: 100 UG, QH, TRANSDERMAL
     Route: 062
  4. CHLORPROMAZINE [Concomitant]

REACTIONS (3)
  - DRUG INTERACTION [None]
  - INTENTIONAL DRUG MISUSE [None]
  - PNEUMONIA [None]
